FAERS Safety Report 11316771 (Version 1)
Quarter: 2015Q3

REPORT INFORMATION
  Report Type: Spontaneous
  Country: US (occurrence: US)
  Receive Date: 20150728
  Receipt Date: 20150728
  Transmission Date: 20151125
  Serious: No
  Sender: FDA-Public Use
  Company Number: US-PFIZER INC-2015244982

PATIENT
  Age: 74 Year
  Sex: Female
  Weight: 76.19 kg

DRUGS (3)
  1. MEDROL [Suspect]
     Active Substance: METHYLPREDNISOLONE
     Indication: INJECTION SITE PAIN
     Dosage: UNK
  2. MOBIC [Suspect]
     Active Substance: MELOXICAM
     Indication: INJECTION SITE PAIN
     Dosage: 7.5 MG, 1X/DAY
  3. HYDROCODONE [Suspect]
     Active Substance: HYDROCODONE
     Indication: INJECTION SITE PAIN
     Dosage: UNK

REACTIONS (3)
  - Drug ineffective [Unknown]
  - Wheezing [Unknown]
  - Cough [Unknown]

NARRATIVE: CASE EVENT DATE: 2015
